FAERS Safety Report 4692969-5 (Version None)
Quarter: 2005Q2

REPORT INFORMATION
  Report Type: 
  Country: None (occurrence: None)
  Receive Date: 20050617
  Receipt Date: 20050607
  Transmission Date: 20051028
  Serious: Yes (Hospitalization)
  Sender: FDA-Public Use
  Company Number: US-JNJFOC-20030902874

PATIENT
  Sex: Female
  Weight: 67.59 kg

DRUGS (7)
  1. INFLIXIMAB [Suspect]
     Route: 042
  2. INFLIXIMAB [Suspect]
     Route: 042
  3. INFLIXIMAB [Suspect]
     Route: 042
  4. INFLIXIMAB [Suspect]
     Route: 042
  5. INFLIXIMAB [Suspect]
     Indication: CROHN'S DISEASE
     Route: 042
  6. 6-MP [Suspect]
     Indication: CROHN'S DISEASE
  7. ANTIBIOTICS [Concomitant]

REACTIONS (8)
  - BONE MARROW DEPRESSION [None]
  - CROHN'S DISEASE [None]
  - HAEMOLYTIC ANAEMIA [None]
  - HERPES SIMPLEX [None]
  - LEUKOPENIA [None]
  - LIVER FUNCTION TEST ABNORMAL [None]
  - ORAL CANDIDIASIS [None]
  - STEVENS-JOHNSON SYNDROME [None]
